FAERS Safety Report 6303946-2 (Version None)
Quarter: 2009Q3

REPORT INFORMATION
  Report Type: 
  Country: None (occurrence: None)
  Receive Date: 20090810
  Receipt Date: 20090810
  Transmission Date: 20100115
  Serious: Yes (Hospitalization)
  Sender: FDA-Public Use
  Company Number: None

PATIENT
  Age: 56 Year
  Sex: Female
  Weight: 75 kg

DRUGS (6)
  1. LITHIUM CARBONATE [Suspect]
     Indication: BIPOLAR DISORDER
     Dosage: 300 MG BID PO PRIOR TO ADMISSION
     Route: 048
  2. HYDROCHLOROTHIAZIDE [Suspect]
     Indication: HYPERTENSION
     Dosage: 25 MG DAILY PO PRIOR TO ADMISSION
     Route: 048
  3. LISINOPRIL AND HYDROCHLOROTHIAZIDE [Suspect]
  4. PRAVASTATIN [Concomitant]
  5. DULOXETINE HYDROCHLORIDE [Concomitant]
  6. ATENOLOL [Suspect]

REACTIONS (5)
  - DELIRIUM [None]
  - HYPOVOLAEMIA [None]
  - LEUKOCYTOSIS [None]
  - SINUS BRADYCARDIA [None]
  - THERAPEUTIC AGENT TOXICITY [None]
